FAERS Safety Report 9323670 (Version 2)
Quarter: 2013Q2

REPORT INFORMATION
  Report Type: Spontaneous
  Country: GB (occurrence: GB)
  Receive Date: 20130603
  Receipt Date: 20130614
  Transmission Date: 20140414
  Serious: Yes (Disabling)
  Sender: FDA-Public Use
  Company Number: PHFR2013GB002456

PATIENT
  Sex: Male

DRUGS (6)
  1. TEGRETOL RETARD [Suspect]
     Indication: TRIGEMINAL NEURALGIA
     Dosage: 1200 MG, DAILY
     Route: 048
     Dates: start: 1990, end: 2001
  2. TEGRETOL RETARD [Suspect]
     Dosage: 200 MG, BID
     Route: 048
     Dates: start: 2008
  3. TAMSULOSIN HCL [Concomitant]
     Dosage: 400 MG, DAILY
     Route: 048
  4. ASPIRIN [Concomitant]
     Dosage: 75 MG, DAILY
     Route: 048
  5. SIMVASTATIN [Concomitant]
     Indication: MYOCARDIAL INFARCTION
     Dosage: 40 MG, DAILY
     Route: 048
  6. BISOPROLOL [Concomitant]
     Indication: MYOCARDIAL INFARCTION
     Dosage: 2.5 MG, DAILY
     Route: 048

REACTIONS (6)
  - Somnolence [Not Recovered/Not Resolved]
  - Fatigue [Unknown]
  - Decreased interest [Not Recovered/Not Resolved]
  - Muscle twitching [Not Recovered/Not Resolved]
  - Amnesia [Not Recovered/Not Resolved]
  - Abdominal discomfort [Not Recovered/Not Resolved]
